FAERS Safety Report 7462846-5 (Version None)
Quarter: 2011Q2

REPORT INFORMATION
  Report Type: 
  Country: None (occurrence: None)
  Receive Date: 20110506
  Receipt Date: 20110503
  Transmission Date: 20111010
  Serious: Yes (Hospitalization, Other)
  Sender: FDA-Public Use
  Company Number: US-B.I. PHARMACEUTICALS,INC./RIDGEFIELD-2011-BP-08709BP

PATIENT
  Sex: Male

DRUGS (14)
  1. SPIRIVA [Suspect]
     Indication: EMPHYSEMA
     Dosage: 18 MCG
     Route: 055
     Dates: start: 20090101
  2. HYDROCODONE BITARTRATE [Concomitant]
     Indication: JOINT INJURY
     Route: 048
  3. LANTUS [Concomitant]
     Indication: DIABETES MELLITUS
     Dosage: 18 U
     Route: 058
  4. ADVAIR DISKUS 100/50 [Concomitant]
     Indication: EMPHYSEMA
     Route: 055
  5. ASPIRIN [Concomitant]
     Indication: PROPHYLAXIS
     Dosage: 81 MG
     Route: 048
  6. FLUTICASONE PROPIONATE [Concomitant]
     Indication: MULTIPLE ALLERGIES
  7. SPIRIVA [Suspect]
     Indication: LUNG OPERATION
  8. DIOVAN [Concomitant]
     Indication: HYPERTENSION
     Dosage: 160 MG
     Route: 048
  9. VYTORIN [Concomitant]
     Indication: BLOOD CHOLESTEROL ABNORMAL
     Route: 048
  10. FLECTOR [Concomitant]
     Indication: JOINT INJURY
     Route: 061
  11. PEPCID [Concomitant]
     Indication: ABDOMINAL DISCOMFORT
     Dosage: 40 MG
     Route: 048
  12. METFORMIN [Concomitant]
     Indication: DIABETES MELLITUS
     Dosage: 1700 MG
     Route: 048
  13. PROAIR HFA [Concomitant]
     Indication: EMPHYSEMA
     Route: 055
  14. SINGULAIR [Concomitant]
     Indication: MULTIPLE ALLERGIES
     Dosage: 10 MG
     Route: 048

REACTIONS (1)
  - TRANSIENT ISCHAEMIC ATTACK [None]
